FAERS Safety Report 16343437 (Version 2)
Quarter: 2019Q2

REPORT INFORMATION
  Report Type: Spontaneous
  Country: DE (occurrence: DE)
  Receive Date: 20190522
  Receipt Date: 20190523
  Transmission Date: 20190711
  Serious: Yes (Other)
  Sender: FDA-Public Use
  Company Number: DE-BAYER-2019-099653

PATIENT
  Age: 29 Year
  Sex: Female
  Weight: 48 kg

DRUGS (3)
  1. GADOVIST [Suspect]
     Active Substance: GADOBUTROL
     Indication: NUCLEAR MAGNETIC RESONANCE IMAGING ABDOMINAL
     Dosage: 6 ML, ONCE, BEFORE SURGERY
     Route: 042
     Dates: start: 20180823, end: 20180823
  2. GADOVIST [Suspect]
     Active Substance: GADOBUTROL
     Indication: APPENDICITIS
     Dosage: 5 ML, ONCE, AFTER SURGERY
     Route: 042
     Dates: start: 20181017, end: 20181017
  3. GADOVIST [Suspect]
     Active Substance: GADOBUTROL
     Indication: INTRA-ABDOMINAL FLUID COLLECTION

REACTIONS (3)
  - Contrast media toxicity [None]
  - Pain [None]
  - Blood heavy metal increased [None]

NARRATIVE: CASE EVENT DATE: 201808
